FAERS Safety Report 25350988 (Version 1)
Quarter: 2025Q2

REPORT INFORMATION
  Report Type: Spontaneous
  Country: CA (occurrence: CA)
  Receive Date: 20250523
  Receipt Date: 20250523
  Transmission Date: 20250716
  Serious: Yes (Hospitalization)
  Sender: NOVO NORDISK
  Company Number: CA-NOVOPROD-1422866

PATIENT

DRUGS (2)
  1. SAXENDA [Suspect]
     Active Substance: LIRAGLUTIDE
     Indication: Product used for unknown indication
     Dates: start: 202402, end: 202411
  2. SAXENDA [Suspect]
     Active Substance: LIRAGLUTIDE
     Dates: start: 202504

REACTIONS (4)
  - Surgery [Unknown]
  - Liquid product physical issue [Unknown]
  - Product leakage [Unknown]
  - Wrong technique in product usage process [Unknown]
